FAERS Safety Report 24030852 (Version 1)
Quarter: 2024Q2

REPORT INFORMATION
  Report Type: Spontaneous
  Country: CN (occurrence: CN)
  Receive Date: 20240628
  Receipt Date: 20240628
  Transmission Date: 20240716
  Serious: Yes (Hospitalization)
  Sender: FDA-Public Use
  Company Number: CN-ELI_LILLY_AND_COMPANY-CN202406015183

PATIENT
  Sex: Male

DRUGS (2)
  1. CYMBALTA [Suspect]
     Active Substance: DULOXETINE HYDROCHLORIDE
     Indication: Myalgia
     Dosage: 60 MG, UNKNOWN
     Route: 048
     Dates: start: 202307
  2. CYMBALTA [Suspect]
     Active Substance: DULOXETINE HYDROCHLORIDE
     Indication: Anxiety
     Dosage: 30 MG, UNKNOWN
     Route: 048
     Dates: start: 20240322, end: 20240415

REACTIONS (4)
  - Intervertebral disc protrusion [Unknown]
  - Discomfort [Unknown]
  - Fibrin D dimer increased [Recovered/Resolved]
  - Tinnitus [Recovered/Resolved]

NARRATIVE: CASE EVENT DATE: 20240224
